FAERS Safety Report 16094425 (Version 3)
Quarter: 2019Q3

REPORT INFORMATION
  Report Type: Spontaneous
  Country: US (occurrence: US)
  Receive Date: 20190320
  Receipt Date: 20190827
  Transmission Date: 20191004
  Serious: Yes (Hospitalization, Other)
  Sender: FDA-Public Use
  Company Number: US-PFIZER INC-2019116750

PATIENT
  Age: 47 Year
  Sex: Female
  Weight: 66 kg

DRUGS (2)
  1. IBRANCE [Suspect]
     Active Substance: PALBOCICLIB
     Indication: BREAST CANCER METASTATIC
     Dosage: 100 MG, CYCLIC [DAY 1-21 WITH 7 DAYS OFF]
     Route: 048
     Dates: start: 201810
  2. IBRANCE [Suspect]
     Active Substance: PALBOCICLIB
     Dosage: 100 MG, CYCLIC [DAY 1-21 WITH 7 DAYS OFF]/[DAYS 1-21 Q28 DAYS]
     Route: 048

REACTIONS (21)
  - Premenstrual syndrome [Unknown]
  - Swelling [Unknown]
  - Fear [Unknown]
  - Weight increased [Unknown]
  - Major depression [Unknown]
  - Frustration tolerance decreased [Unknown]
  - Fatigue [Unknown]
  - Pneumonia [Unknown]
  - Suicidal ideation [Unknown]
  - Tongue discolouration [Unknown]
  - Sepsis [Unknown]
  - Abdominal distension [Unknown]
  - Pruritus [Unknown]
  - Neoplasm progression [Unknown]
  - Pain [Unknown]
  - Crying [Unknown]
  - Influenza [Unknown]
  - Food craving [Unknown]
  - Muscle tightness [Unknown]
  - Endocrine disorder [Unknown]
  - Hot flush [Unknown]

NARRATIVE: CASE EVENT DATE: 20190301
